FAERS Safety Report 8971497 (Version 4)
Quarter: 2013Q4

REPORT INFORMATION
  Report Type: Spontaneous
  Country: JP (occurrence: JP)
  Receive Date: 20121218
  Receipt Date: 20131219
  Transmission Date: 20140711
  Serious: Yes (Hospitalization)
  Sender: FDA-Public Use
  Company Number: PHHY2012JP115489

PATIENT
  Age: 31 Year
  Sex: Male

DRUGS (4)
  1. NEORAL [Suspect]
     Indication: APLASTIC ANAEMIA
     Route: 048
  2. NEORAL [Suspect]
     Indication: PROPHYLAXIS AGAINST TRANSPLANT REJECTION
  3. IMMUNOGLOBULINS [Concomitant]
     Indication: APLASTIC ANAEMIA
  4. GRANULOCYTE COLONY-STIMULATING FACTOR NOS [Concomitant]
     Indication: APLASTIC ANAEMIA

REACTIONS (7)
  - Blood alkaline phosphatase increased [Recovering/Resolving]
  - Hyperglycaemia [Recovering/Resolving]
  - Polyuria [Unknown]
  - Thirst [Unknown]
  - Polydipsia [Unknown]
  - Glycosylated haemoglobin increased [Recovering/Resolving]
  - Hypoinsulinaemia [Unknown]
